FAERS Safety Report 21927864 (Version 1)
Quarter: 2023Q1

REPORT INFORMATION
  Report Type: Spontaneous
  Country: US (occurrence: None)
  Receive Date: 20230130
  Receipt Date: 20230130
  Transmission Date: 20230417
  Serious: Yes (Other)
  Sender: FDA-Public Use
  Company Number: None

PATIENT
  Age: 50 Year
  Sex: Female
  Weight: 63 kg

DRUGS (1)
  1. VILAZODONE [Suspect]
     Active Substance: VILAZODONE
     Indication: Major depression
     Dosage: FREQUENCY : DAILY;?
     Route: 002
     Dates: start: 20230116

REACTIONS (2)
  - Joint swelling [None]
  - Pruritus [None]

NARRATIVE: CASE EVENT DATE: 20230116
